FAERS Safety Report 5614327-9 (Version None)
Quarter: 2008Q1

REPORT INFORMATION
  Report Type: 
  Country: None (occurrence: None)
  Receive Date: 20080130
  Receipt Date: 20060818
  Transmission Date: 20080703
  Serious: No
  Sender: FDA-Public Use
  Company Number: NL01PV06.00042

PATIENT
  Age: 50 Year

DRUGS (2)
  1. PAROXETINE [Suspect]
  2. NEULACTIL (PERICIAZINE) [Suspect]
     Dosage: 2.5 MG UNK
     Dates: start: 20051201

REACTIONS (1)
  - TARDIVE DYSKINESIA [None]
